FAERS Safety Report 9825936 (Version 1)
Quarter: 2013Q4

REPORT INFORMATION
  Report Type: Spontaneous
  Country: US (occurrence: None)
  Receive Date: 20131223
  Receipt Date: 20131223
  Transmission Date: 20140711
  Serious: No
  Sender: FDA-Public Use
  Company Number: 220068LEO

PATIENT
  Age: 40 Year
  Sex: Female

DRUGS (3)
  1. PICATO [Suspect]
     Dosage: 1 IN 1 D, TOPICAL
     Dates: start: 20130102, end: 20130104
  2. LIPITOR (ATORVASTATIN CALCIUM) (10 MG) [Concomitant]
  3. VITAMINS (VITAMINS NOS) [Concomitant]

REACTIONS (3)
  - Application site erythema [None]
  - Application site scab [None]
  - Drug administered at inappropriate site [None]
